FAERS Safety Report 6085737-3 (Version None)
Quarter: 2009Q1

REPORT INFORMATION
  Report Type: 
  Country: None (occurrence: None)
  Receive Date: 20090220
  Receipt Date: 20090216
  Transmission Date: 20090719
  Serious: Yes (Death)
  Sender: FDA-Public Use
  Company Number: PHHY2009MX05593

PATIENT
  Sex: Male

DRUGS (1)
  1. TEGRETOL [Suspect]
     Dosage: 200 MG, 3 TABLET PER DAY
     Route: 048
     Dates: start: 19950101, end: 20090209

REACTIONS (1)
  - THYROID CANCER [None]
